FAERS Safety Report 7934201-2 (Version None)
Quarter: 2011Q4

REPORT INFORMATION
  Report Type: 
  Country: None (occurrence: None)
  Receive Date: 20111122
  Receipt Date: 20111121
  Transmission Date: 20120403
  Serious: No
  Sender: FDA-Public Use
  Company Number: US-PFIZER INC-2011284765

PATIENT
  Sex: Female
  Weight: 50.794 kg

DRUGS (6)
  1. IBUPROFEN (ADVIL) [Suspect]
     Indication: BACK PAIN
     Dosage: AT THREE LIQUIGELS OF 200MG, AS NEEDED
     Route: 048
  2. TRAZODONE [Concomitant]
     Indication: FIBROMYALGIA
     Dosage: 100 MG, DAILY
  3. ATENOLOL [Concomitant]
     Indication: MITRAL VALVE PROLAPSE
     Dosage: 25 MG, DAILY
  4. ATENOLOL [Concomitant]
     Indication: HYPOTENSION
  5. KLONOPIN [Concomitant]
     Indication: FIBROMYALGIA
     Dosage: 1 MG, DAILY
  6. SOMA [Concomitant]
     Indication: FIBROMYALGIA
     Dosage: 350 MG, DAILY

REACTIONS (1)
  - THROAT IRRITATION [None]
